FAERS Safety Report 24717473 (Version 8)
Quarter: 2025Q2

REPORT INFORMATION
  Report Type: Report from Study
  Country: CL (occurrence: CL)
  Receive Date: 20241210
  Receipt Date: 20250422
  Transmission Date: 20250717
  Serious: Yes (Hospitalization, Other)
  Sender: TAKEDA
  Company Number: CL-TAKEDA-2024TUS122047

PATIENT
  Age: 7 Year
  Sex: Male
  Weight: 23.6 kg

DRUGS (2)
  1. IDURSULFASE [Suspect]
     Active Substance: IDURSULFASE
     Indication: Mucopolysaccharidosis II
     Dosage: 0.5 MILLIGRAM/KILOGRAM, 1/WEEK
  2. IDURSULFASE [Suspect]
     Active Substance: IDURSULFASE
     Indication: Supplementation therapy
     Dosage: 0.5 MILLIGRAM/KILOGRAM, 1/WEEK

REACTIONS (12)
  - Skin discolouration [Unknown]
  - Atypical pneumonia [Recovering/Resolving]
  - Pneumonia viral [Recovered/Resolved]
  - Pneumonia [Recovering/Resolving]
  - Pneumonia bacterial [Recovering/Resolving]
  - Oxygen saturation decreased [Recovering/Resolving]
  - Pyrexia [Recovered/Resolved]
  - Discouragement [Recovering/Resolving]
  - Otorrhoea [Recovering/Resolving]
  - Nasopharyngitis [Recovering/Resolving]
  - Ear pain [Recovering/Resolving]
  - Obstruction [Recovering/Resolving]

NARRATIVE: CASE EVENT DATE: 20241203
